FAERS Safety Report 24292178 (Version 2)
Quarter: 2025Q3

REPORT INFORMATION
  Report Type: Spontaneous
  Country: US (occurrence: US)
  Receive Date: 20240906
  Receipt Date: 20250905
  Transmission Date: 20251020
  Serious: No
  Sender: DOMPE FARMACEUTICI
  Company Number: US-FARMAPROD-202307-2078

PATIENT
  Sex: Female
  Weight: 68.04 kg

DRUGS (18)
  1. OXERVATE [Suspect]
     Active Substance: CENEGERMIN-BKBJ
     Indication: Neurotrophic keratopathy
     Route: 047
     Dates: start: 20230621, end: 20230816
  2. OXERVATE [Suspect]
     Active Substance: CENEGERMIN-BKBJ
     Indication: Neurotrophic keratopathy
  3. OXERVATE [Suspect]
     Active Substance: CENEGERMIN-BKBJ
     Route: 047
     Dates: start: 20250512
  4. LATANOPROST [Concomitant]
     Active Substance: LATANOPROST
  5. PREDNISOLONE-BROMFENAC [Concomitant]
  6. COLACE [Concomitant]
     Active Substance: DOCUSATE SODIUM
  7. STERILE EYE DROPS [Concomitant]
     Active Substance: DEXTRAN 70\POLYETHYLENE GLYCOL 400\POVIDONE\TETRAHYDROZOLINE HYDROCHLORIDE
  8. TEARS LUBRICANT [Concomitant]
     Active Substance: GLYCERIN\HYPROMELLOSES\POLYETHYLENE GLYCOL 400
  9. REFRESH TEARS [Concomitant]
     Active Substance: CARBOXYMETHYLCELLULOSE SODIUM
  10. OMEGA-3 ACIDS [Concomitant]
     Active Substance: OMEGA-3 FATTY ACIDS
  11. ASPIRIN [Concomitant]
     Active Substance: ASPIRIN
  12. ZYRTEC [Concomitant]
     Active Substance: CETIRIZINE HYDROCHLORIDE
  13. AMLODIPINE BESYLATE [Concomitant]
     Active Substance: AMLODIPINE BESYLATE
  14. ATORVASTATIN CALCIUM [Concomitant]
     Active Substance: ATORVASTATIN CALCIUM
  15. KRILL OIL [Concomitant]
     Active Substance: DIETARY SUPPLEMENT\KRILL OIL
  16. PROBIOTICS NOS [Concomitant]
     Active Substance: PROBIOTICS NOS
  17. FLUOROMETHOLONE [Concomitant]
     Active Substance: FLUOROMETHOLONE
  18. TAFLUPROST [Concomitant]
     Active Substance: TAFLUPROST

REACTIONS (7)
  - Eye pain [Not Recovered/Not Resolved]
  - Photophobia [Not Recovered/Not Resolved]
  - Eye irritation [Recovered/Resolved]
  - Superficial injury of eye [Recovered/Resolved]
  - Eye irritation [Not Recovered/Not Resolved]
  - Eye pruritus [Unknown]
  - Periorbital pain [Unknown]
